FAERS Safety Report 9431532 (Version 2)
Quarter: 2013Q3

REPORT INFORMATION
  Report Type: Spontaneous
  Country: US (occurrence: US)
  Receive Date: 20130731
  Receipt Date: 20130826
  Transmission Date: 20140515
  Serious: No
  Sender: FDA-Public Use
  Company Number: US-009507513-1307USA012274

PATIENT
  Age: 86 Year
  Sex: Male

DRUGS (1)
  1. AZASITE [Suspect]
     Indication: CONJUNCTIVITIS
     Dosage: 1 %, HS
     Route: 031
     Dates: start: 20130715

REACTIONS (3)
  - Drug dose omission [Unknown]
  - Product quality issue [Unknown]
  - No adverse event [Unknown]
